FAERS Safety Report 4989413-7 (Version None)
Quarter: 2006Q2

REPORT INFORMATION
  Report Type: 
  Country: None (occurrence: None)
  Receive Date: 20060425
  Receipt Date: 20060413
  Transmission Date: 20061013
  Serious: Yes (Hospitalization, Other)
  Sender: FDA-Public Use
  Company Number: 2006051352

PATIENT
  Age: 57 Year
  Sex: Female
  Weight: 99.7913 kg

DRUGS (17)
  1. TIKOSYN [Suspect]
     Indication: ARRHYTHMIA
     Dosage: 500 MCG (250 MCG, BID), ORAL; 250 MCG (125 MCG, BID) ORAL
     Route: 048
     Dates: start: 20040101
  2. TIKOSYN [Suspect]
     Indication: ARRHYTHMIA
     Dosage: 500 MCG (250 MCG, BID), ORAL; 250 MCG (125 MCG, BID) ORAL
     Route: 048
     Dates: start: 20040101
  3. MULTIVITAMIN [Concomitant]
  4. ALLOPURINOL [Concomitant]
  5. NEORAL [Concomitant]
  6. NEXIUM [Concomitant]
  7. LASIX [Concomitant]
  8. POTASSIUM (POTASSIUM) [Concomitant]
  9. PREDNISONE TAB [Concomitant]
  10. COUMADIN [Concomitant]
  11. ZESTRIL [Concomitant]
  12. ATENOLOL [Concomitant]
  13. VITAMIN B (VITAMIN B) [Concomitant]
  14. HERB-LAX (SENNA) [Concomitant]
  15. MAGNESIUM (MAGNESIUM) [Concomitant]
  16. CALCIUM (CALCIUM) [Concomitant]
  17. IRON (IRON) [Concomitant]

REACTIONS (4)
  - ANAEMIA [None]
  - PNEUMONIA [None]
  - PULMONARY MASS [None]
  - RENAL DISORDER [None]
